FAERS Safety Report 6491806-6 (Version None)
Quarter: 2009Q4

REPORT INFORMATION
  Report Type: 
  Country: None (occurrence: None)
  Receive Date: 20091210
  Receipt Date: 20091201
  Transmission Date: 20100525
  Serious: Yes (Death)
  Sender: FDA-Public Use
  Company Number: 143

PATIENT
  Age: 76 Year
  Sex: Male

DRUGS (1)
  1. FAZACLO ODT [Suspect]
     Dosage: 125 MG PO DAILY
     Route: 048
     Dates: start: 20070731, end: 20070822

REACTIONS (1)
  - DEMENTIA ALZHEIMER'S TYPE [None]
